FAERS Safety Report 7076176 (Version 2)
Quarter: 2014Q3

REPORT INFORMATION
  Report Type: Spontaneous
  Country: US (occurrence: None)
  Receive Date: 20090728
  Receipt Date: 20140820
  Transmission Date: 20150326
  Serious: Yes (Hospitalization)
  Sender: FDA-Public Use
  Company Number: 20090622VANCO1035

PATIENT
  Age: 76 Year
  Sex: Female

DRUGS (10)
  1. ZANTAC [Concomitant]
     Active Substance: RANITIDINE HYDROCHLORIDE
  2. NEXIUM [Concomitant]
     Active Substance: ESOMEPRAZOLE MAGNESIUM
  3. PRENISOLONE EYE DROPS (PREDNISOLONE) [Concomitant]
  4. CENTRUM SILVER (CENTRUM SILVER /01292501/) [Concomitant]
  5. VITAMIN D (COLECALCIFEROL) [Concomitant]
  6. CALCIUM (CALCIUM) [Concomitant]
     Active Substance: CALCIUM
  7. VANCOMYCIN HYDROCHLORIDE. [Suspect]
     Active Substance: VANCOMYCIN HYDROCHLORIDE
     Indication: CLOSTRIDIAL INFECTION
     Dosage: 500 MG (125 MG, 4 IN 1 D), ORAL
     Route: 048
     Dates: start: 20090323, end: 200903
  8. LIPITOR [Concomitant]
     Active Substance: ATORVASTATIN CALCIUM
  9. FISH OIL (FISH OIL) [Concomitant]
     Active Substance: FISH OIL
  10. AMIODARONE HYDROCHLORIDE. [Concomitant]
     Active Substance: AMIODARONE HYDROCHLORIDE

REACTIONS (7)
  - Diarrhoea [None]
  - Drug ineffective [None]
  - Blood albumin decreased [None]
  - Condition aggravated [None]
  - Blood potassium decreased [None]
  - Anaemia [None]
  - Syncope [None]

NARRATIVE: CASE EVENT DATE: 200903
